FAERS Safety Report 8853447 (Version 1)
Quarter: 2012Q4

REPORT INFORMATION
  Report Type: 
  Country: JP (occurrence: JP)
  Receive Date: 20121022
  Receipt Date: 20121022
  Transmission Date: 20130627
  Serious: Yes (Hospitalization)
  Sender: FDA-Public Use
  Company Number: JP-GLAXOSMITHKLINE-B0838918A

PATIENT
  Age: 36 Year
  Sex: Female

DRUGS (6)
  1. PAXIL [Suspect]
     Indication: DEPRESSION
     Dosage: 40MG Per day
     Route: 048
     Dates: start: 20120718, end: 20121011
  2. PAXIL [Suspect]
     Indication: DEPRESSION
     Dosage: 20MG Per day
     Route: 048
     Dates: start: 20121012
  3. ABILIFY [Concomitant]
     Dosage: 3MG Per day
     Route: 048
  4. JZOLOFT [Concomitant]
  5. CYMBALTA [Concomitant]
  6. AMOXAPINE [Concomitant]

REACTIONS (2)
  - Suicide attempt [Not Recovered/Not Resolved]
  - Intentional self-injury [Unknown]
